FAERS Safety Report 8922500 (Version 1)
Quarter: 2012Q4

REPORT INFORMATION
  Report Type: 
  Country: US (occurrence: US)
  Receive Date: 20121123
  Receipt Date: 20121123
  Transmission Date: 20130627
  Serious: No
  Sender: FDA-Public Use
  Company Number: US-PFIZER INC-2012291183

PATIENT
  Sex: Male

DRUGS (2)
  1. SUTENT [Suspect]
     Indication: CANCER (NOS)
     Dosage: 50 mg, 1x/day
     Dates: start: 201108
  2. SUTENT [Suspect]
     Dosage: 37.5 mg, 1x/day, x 28 days and 14 days break

REACTIONS (6)
  - Arthralgia [Unknown]
  - Bone pain [Unknown]
  - Jaundice [Unknown]
  - Fatigue [Unknown]
  - Decreased appetite [Unknown]
  - Oral pain [Unknown]
